FAERS Safety Report 9554149 (Version 1)
Quarter: 2013Q3

REPORT INFORMATION
  Report Type: Spontaneous
  Country: US (occurrence: None)
  Receive Date: 20130815
  Receipt Date: 20130815
  Transmission Date: 20140515
  Serious: Yes (Other)
  Sender: FDA-Public Use
  Company Number: ADR-2012-01200

PATIENT
  Sex: Male

DRUGS (3)
  1. LIORESAL INTRATHECAL (BACLOFEN INJECTION) [Suspect]
     Indication: MUSCLE SPASTICITY
  2. LIORESAL INTRATHECAL (BACLOFEN INJECTION) [Suspect]
     Indication: SPINAL CORD INJURY
  3. LIORESAL INTRATHECAL (BACLOFEN INJECTION) [Suspect]
     Indication: SPINAL CORD DISORDER

REACTIONS (3)
  - Infusion site extravasation [None]
  - Implant site extravasation [None]
  - Intracranial hypotension [None]
